FAERS Safety Report 8206327-X (Version None)
Quarter: 2012Q1

REPORT INFORMATION
  Report Type: 
  Country: None (occurrence: None)
  Receive Date: 20120313
  Receipt Date: 20120228
  Transmission Date: 20120608
  Serious: Yes (Hospitalization, Other)
  Sender: FDA-Public Use
  Company Number: PHHY2012FR018224

PATIENT
  Sex: Male

DRUGS (12)
  1. GLEEVEC [Suspect]
     Dosage: 550 MG, DAILY
     Dates: start: 20080101
  2. GLEEVEC [Suspect]
     Dosage: 400 MG, DAILY
     Dates: start: 20091101
  3. TASIGNA [Suspect]
     Indication: CHRONIC MYELOID LEUKAEMIA
     Dosage: 800 MG, DAILY
     Route: 048
     Dates: start: 20100701, end: 20110101
  4. GLEEVEC [Suspect]
     Dates: start: 20110101
  5. CELECTOL [Concomitant]
     Dates: start: 20110201
  6. PERINDOPRIL ERBUMINE [Concomitant]
     Dosage: 2.5 MG, QD
     Dates: start: 20110201
  7. GLEEVEC [Suspect]
     Dosage: 600 MG, DAILY
     Dates: start: 20040401
  8. CHONDROSULF [Concomitant]
  9. EFFIENT [Concomitant]
     Dosage: 10 MG, QD
     Dates: start: 20110201
  10. GLEEVEC [Suspect]
     Indication: CHRONIC MYELOID LEUKAEMIA
     Dosage: 400 MG, DAILY
     Dates: start: 20000701
  11. CLONAZEPAM [Concomitant]
     Dosage: 4 TO 5 DRPOS DAILY
     Dates: start: 20090701
  12. ATORVASTATIN [Concomitant]
     Dosage: 40 MG, QD
     Dates: start: 20110201

REACTIONS (7)
  - EYELID OEDEMA [None]
  - ARTERIOSCLEROSIS MOENCKEBERG-TYPE [None]
  - CONJUNCTIVITIS [None]
  - ACUTE MYOCARDIAL INFARCTION [None]
  - CHEST PAIN [None]
  - MUSCLE SPASMS [None]
  - ARTERIAL STENOSIS [None]
